FAERS Safety Report 20196730 (Version 1)
Quarter: 2021Q4

REPORT INFORMATION
  Report Type: Spontaneous
  Country: FR (occurrence: FR)
  Receive Date: 20211216
  Receipt Date: 20211216
  Transmission Date: 20220303
  Serious: Yes (Other)
  Sender: FDA-Public Use
  Company Number: FR-AFSSAPS-TO20219257

PATIENT
  Age: 71 Year
  Sex: Male

DRUGS (2)
  1. LINEZOLID [Suspect]
     Active Substance: LINEZOLID
     Indication: Infection
     Dosage: 600 MILLIGRAM, TWO TIMES A DAY (600MG 2X/JR)
     Route: 042
     Dates: start: 20210321, end: 20210329
  2. CEFTRIAXONE [Suspect]
     Active Substance: CEFTRIAXONE
     Indication: Infection
     Dosage: 1 GRAM, ONCE A DAY ((1G/D) )
     Route: 042
     Dates: start: 20210323, end: 20210329

REACTIONS (1)
  - Acute generalised exanthematous pustulosis [Recovering/Resolving]

NARRATIVE: CASE EVENT DATE: 20210329
